FAERS Safety Report 10507025 (Version 1)
Quarter: 2014Q4

REPORT INFORMATION
  Report Type: Spontaneous
  Country: US (occurrence: None)
  Receive Date: 20141008
  Receipt Date: 20141008
  Transmission Date: 20150528
  Serious: Yes (Disabling, Other)
  Sender: FDA-Public Use
  Company Number: None

PATIENT
  Age: 44 Year
  Sex: Female
  Weight: 58.97 kg

DRUGS (1)
  1. MIRENA [Suspect]
     Active Substance: LEVONORGESTREL
     Indication: CONTRACEPTION
     Dosage: 20 MCG/DAY; INSERTED
     Route: 067
     Dates: start: 20070912, end: 20140125

REACTIONS (24)
  - Alopecia [None]
  - Irritability [None]
  - Dry eye [None]
  - Asthenia [None]
  - Anxiety [None]
  - Arthralgia [None]
  - Back pain [None]
  - Partner stress [None]
  - Headache [None]
  - Impaired work ability [None]
  - Eye irritation [None]
  - Depressed mood [None]
  - Quality of life decreased [None]
  - Aphasia [None]
  - Hormone level abnormal [None]
  - Sexual dysfunction [None]
  - Fatigue [None]
  - Amnesia [None]
  - Activities of daily living impaired [None]
  - Visual impairment [None]
  - Acne [None]
  - Vaginal cyst [None]
  - Gait disturbance [None]
  - Educational problem [None]

NARRATIVE: CASE EVENT DATE: 20120809
